FAERS Safety Report 25244871 (Version 1)
Quarter: 2025Q2

REPORT INFORMATION
  Report Type: Spontaneous
  Country: US (occurrence: US)
  Receive Date: 20250428
  Receipt Date: 20250428
  Transmission Date: 20250716
  Serious: No
  Sender: AMARIN
  Company Number: US-Amarin Pharma  Inc-2025AMR000194

PATIENT
  Age: 74 Year
  Sex: Male

DRUGS (3)
  1. VASCEPA [Suspect]
     Active Substance: ICOSAPENT ETHYL
     Indication: Blood cholesterol increased
     Route: 065
     Dates: start: 2025
  2. VASCEPA [Suspect]
     Active Substance: ICOSAPENT ETHYL
     Indication: Blood triglycerides increased
     Route: 065
  3. VASCEPA [Suspect]
     Active Substance: ICOSAPENT ETHYL
     Route: 065
     Dates: start: 2025, end: 2025

REACTIONS (8)
  - Eructation [Unknown]
  - Regurgitation [Unknown]
  - Malaise [Unknown]
  - Prescribed overdose [Unknown]
  - Intentional product misuse [Unknown]
  - Product prescribing error [Unknown]
  - Product taste abnormal [Unknown]
  - Product odour abnormal [Unknown]

NARRATIVE: CASE EVENT DATE: 20250101
